FAERS Safety Report 19302978 (Version 2)
Quarter: 2021Q3

REPORT INFORMATION
  Report Type: Spontaneous
  Country: JP (occurrence: JP)
  Receive Date: 20210525
  Receipt Date: 20210809
  Transmission Date: 20211014
  Serious: Yes (Hospitalization, Other)
  Sender: FDA-Public Use
  Company Number: JP-009507513-2011JPN004199J

PATIENT
  Age: 73 Year
  Sex: Female
  Weight: 58 kg

DRUGS (9)
  1. PEMETREXED DISODIUM [Concomitant]
     Active Substance: PEMETREXED DISODIUM
     Dosage: 700 MILLIGRAM, Q3W
     Route: 041
     Dates: start: 20201203, end: 20210204
  2. FOLIAMIN [FOLIC ACID] [Concomitant]
     Indication: CHEMOTHERAPY SIDE EFFECT PROPHYLAXIS
     Dosage: 0.5 MILLIGRAM, QD
     Route: 048
     Dates: start: 20201016, end: 20210408
  3. MAGMITT [Concomitant]
     Active Substance: MAGNESIUM OXIDE
     Dosage: 330 MILLIGRAM, TID
     Route: 048
     Dates: start: 20201029, end: 20201226
  4. KEYTRUDA [Suspect]
     Active Substance: PEMBROLIZUMAB
     Indication: LUNG ADENOCARCINOMA STAGE III
     Dosage: 200 MILLIGRAM, EVERY 4 WEEKS
     Route: 041
     Dates: start: 20201001, end: 20201029
  5. CARBOPLATIN. [Concomitant]
     Active Substance: CARBOPLATIN
     Indication: LUNG ADENOCARCINOMA STAGE III
     Dosage: 420 MILLIGRAM, EVERY 4 WEEKS
     Route: 041
     Dates: start: 20201001, end: 20201029
  6. PRIMPERAN [Concomitant]
     Active Substance: METOCLOPRAMIDE HYDROCHLORIDE
     Dosage: 5 MILLIGRAM, TID
     Route: 048
     Dates: start: 20201029, end: 20201115
  7. KEYTRUDA [Suspect]
     Active Substance: PEMBROLIZUMAB
     Dosage: 200 MILLIGRAM, Q3W
     Route: 041
     Dates: start: 20201203
  8. PEMETREXED DISODIUM [Concomitant]
     Active Substance: PEMETREXED DISODIUM
     Indication: LUNG ADENOCARCINOMA STAGE III
     Dosage: 750 MILLIGRAM, EVERY 4 WEEKS
     Route: 041
     Dates: start: 20201001, end: 20201029
  9. SENNOSIDE A+B [Concomitant]
     Active Substance: SENNOSIDES A AND B
     Dosage: 24 MILLIGRAM, QD
     Route: 048
     Dates: start: 20201029, end: 20201225

REACTIONS (7)
  - Immune-mediated enterocolitis [Recovered/Resolved]
  - Pulmonary artery thrombosis [Unknown]
  - Decreased appetite [Unknown]
  - Off label use [Unknown]
  - Interstitial lung disease [Not Recovered/Not Resolved]
  - Malaise [Unknown]
  - Nausea [Unknown]

NARRATIVE: CASE EVENT DATE: 20201029
